FAERS Safety Report 7312746-6 (Version None)
Quarter: 2011Q1

REPORT INFORMATION
  Report Type: 
  Country: None (occurrence: None)
  Receive Date: 20110224
  Receipt Date: 20101108
  Transmission Date: 20110831
  Serious: No
  Sender: FDA-Public Use
  Company Number: US-MYLANLABS-2010S1020680

PATIENT
  Age: 78 Year
  Sex: Male

DRUGS (8)
  1. LANTUS [Concomitant]
     Indication: INSULIN-REQUIRING TYPE 2 DIABETES MELLITUS
     Dosage: 50-60 UNITS
  2. TOPROL-XL [Concomitant]
  3. UROTROL /01241602/ [Concomitant]
     Indication: PROSTATE INFECTION
  4. METFORMIN HCL [Suspect]
     Indication: TYPE 2 DIABETES MELLITUS
     Dates: end: 20100821
  5. NOVOLOG [Concomitant]
     Indication: INSULIN-REQUIRING TYPE 2 DIABETES MELLITUS
     Dates: start: 20101001
  6. ZOCOR [Concomitant]
     Indication: BLOOD CHOLESTEROL
  7. CALCITROL /00514701/ [Concomitant]
     Indication: BLOOD CHOLESTEROL
  8. GLYBURIDE [Suspect]
     Indication: TYPE 2 DIABETES MELLITUS
     Route: 048
     Dates: end: 20101019

REACTIONS (2)
  - RENAL IMPAIRMENT [None]
  - GLOMERULAR FILTRATION RATE DECREASED [None]
